FAERS Safety Report 5562498-5 (Version None)
Quarter: 2007Q4

REPORT INFORMATION
  Report Type: 
  Country: None (occurrence: None)
  Receive Date: 20071216
  Receipt Date: 20071207
  Transmission Date: 20080405
  Serious: Yes (Other)
  Sender: FDA-Public Use
  Company Number: US-ALLERGAN-0713507US

PATIENT
  Sex: Female

DRUGS (4)
  1. BOTOX [Suspect]
     Indication: TORTICOLLIS
     Dosage: UNK, SINGLE
     Route: 030
  2. COGENTIN [Concomitant]
  3. CLONAZEPAM [Concomitant]
  4. PREVACID [Concomitant]

REACTIONS (3)
  - APHAGIA [None]
  - BREAST CANCER RECURRENT [None]
  - DYSPHAGIA [None]
